FAERS Safety Report 7683796-5 (Version None)
Quarter: 2011Q3

REPORT INFORMATION
  Report Type: 
  Country: None (occurrence: None)
  Receive Date: 20110815
  Receipt Date: 20110810
  Transmission Date: 20111222
  Serious: Yes (Other)
  Sender: FDA-Public Use
  Company Number: US-US-EMD SERONO, INC.-220002N07USA

PATIENT
  Sex: Male
  Weight: 29 kg

DRUGS (7)
  1. LEVOXYL [Concomitant]
     Indication: HYPOTHYROIDISM
     Route: 048
     Dates: start: 20031003
  2. SINGULAIR [Concomitant]
     Indication: ASTHMA
     Route: 048
  3. SAIZEN [Suspect]
     Indication: GROWTH HORMONE DEFICIENCY
     Route: 058
     Dates: start: 20030415, end: 20060303
  4. ALBUTEROL SULFATE AUTOHALER [Concomitant]
     Indication: ASTHMA
  5. DDAVP [Concomitant]
     Indication: DIABETES INSIPIDUS
     Route: 048
     Dates: start: 20000612
  6. DDAVP [Concomitant]
     Route: 048
     Dates: start: 20000612
  7. FLOVENT [Concomitant]
     Indication: ASTHMA

REACTIONS (1)
  - CNS GERMINOMA [None]
